FAERS Safety Report 17344534 (Version 1)
Quarter: 2020Q1

REPORT INFORMATION
  Report Type: Spontaneous
  Country: US (occurrence: US)
  Receive Date: 20200129
  Receipt Date: 20200129
  Transmission Date: 20200409
  Serious: Yes (Hospitalization)
  Sender: FDA-Public Use
  Company Number: US-009507513-2001USA007374

PATIENT
  Age: 80 Year
  Sex: Female

DRUGS (8)
  1. EXELON [Suspect]
     Active Substance: RIVASTIGMINE TARTRATE
     Dosage: UNK
  2. LIVALO [Concomitant]
     Active Substance: PITAVASTATIN CALCIUM
     Indication: BLOOD CHOLESTEROL
  3. REMERON [Suspect]
     Active Substance: MIRTAZAPINE
     Dosage: 15 MILLIGRAM, QD
  4. EXELON [Suspect]
     Active Substance: RIVASTIGMINE TARTRATE
     Dosage: UNK
  5. PREDNISONE. [Concomitant]
     Active Substance: PREDNISONE
     Indication: ARTHRITIS
     Dosage: 4 MG, UNK
  6. VITAMIN D (UNSPECIFIED) [Concomitant]
     Active Substance: VITAMIN D NOS
     Dosage: UNK UKN, UNK
  7. EXELON [Suspect]
     Active Substance: RIVASTIGMINE TARTRATE
     Dosage: 9.5 MILLIGRAM, 1 PATCH PER DAY
     Route: 062
  8. REMERON [Concomitant]
     Active Substance: MIRTAZAPINE

REACTIONS (8)
  - Application site erythema [Unknown]
  - Memory impairment [Unknown]
  - Vomiting [Unknown]
  - Malaise [Unknown]
  - Application site pruritus [Unknown]
  - Headache [Unknown]
  - Diarrhoea [Unknown]
  - Atrioventricular block [Unknown]
